FAERS Safety Report 6939941-X (Version None)
Quarter: 2010Q3

REPORT INFORMATION
  Report Type: 
  Country: None (occurrence: None)
  Receive Date: 20100825
  Receipt Date: 20100812
  Transmission Date: 20110219
  Serious: Yes (Other)
  Sender: FDA-Public Use
  Company Number: US-PFIZER INC-2010102297

PATIENT
  Sex: Male
  Weight: 65.76 kg

DRUGS (3)
  1. CHANTIX [Suspect]
     Indication: SMOKING CESSATION THERAPY
     Dosage: 0.5 MG, DAILY
     Route: 048
     Dates: start: 20100802, end: 20100811
  2. PROTONIX [Concomitant]
     Indication: GASTROOESOPHAGEAL REFLUX DISEASE
     Dosage: UNK
  3. VALSARTAN [Concomitant]
     Indication: HYPERTENSION
     Dosage: 160 MG, UNK

REACTIONS (3)
  - AGITATION [None]
  - DYSPNOEA [None]
  - MUSCULAR WEAKNESS [None]
